FAERS Safety Report 14505475 (Version 1)
Quarter: 2018Q1

REPORT INFORMATION
  Report Type: Spontaneous
  Country: DE (occurrence: DE)
  Receive Date: 20180208
  Receipt Date: 20180208
  Transmission Date: 20180509
  Serious: Yes (Hospitalization)
  Sender: FDA-Public Use
  Company Number: DE-NOVOPROD-575636

PATIENT
  Age: 12 Year
  Sex: Female
  Weight: 54.6 kg

DRUGS (4)
  1. NOVORAPID [Suspect]
     Active Substance: INSULIN ASPART
     Dosage: UNK
     Route: 058
  2. NOVORAPID [Suspect]
     Active Substance: INSULIN ASPART
     Dosage: DOSE INCREASED
     Route: 058
  3. NOVORAPID [Suspect]
     Active Substance: INSULIN ASPART
     Indication: TYPE 1 DIABETES MELLITUS
     Dosage: 52.7 IU, QD
     Route: 058
  4. NOVORAPID [Suspect]
     Active Substance: INSULIN ASPART
     Dosage: 52.7 IU, QD
     Route: 058

REACTIONS (5)
  - Diabetic ketoacidosis [Recovered/Resolved]
  - Product container issue [Unknown]
  - Liquid product physical issue [Unknown]
  - Wrong technique in product usage process [Unknown]
  - Product leakage [Unknown]

NARRATIVE: CASE EVENT DATE: 20171126
